FAERS Safety Report 6128769-9 (Version None)
Quarter: 2009Q1

REPORT INFORMATION
  Report Type: 
  Country: None (occurrence: None)
  Receive Date: 20090320
  Receipt Date: 20090309
  Transmission Date: 20090719
  Serious: Yes (Hospitalization)
  Sender: FDA-Public Use
  Company Number: 1000005253

PATIENT
  Age: 39 Year
  Sex: Female

DRUGS (10)
  1. MILNACIOPRAN (MILNACIPRAN HYDROCHLORIDE) (CAPSULES) [Suspect]
     Indication: DEPRESSION
     Dosage: 100 MG (50 MG,2 IN 1 D),ORAL
     Route: 048
     Dates: start: 20080923, end: 20081021
  2. RISPERDAL CONSTA [Suspect]
     Indication: DELUSIONAL DISORDER, PERSECUTORY TYPE
     Dosage: (25 MG1 IN 14 D),INTRAMUSCULAR
     Route: 030
     Dates: start: 20080729, end: 20081021
  3. NOCTRAN [Suspect]
     Indication: DEPRESSION
     Dosage: 10 MG (10 MG,1 IN 1 D),ORAL
     Route: 048
     Dates: start: 20080923, end: 20081021
  4. LEPTICUR [Suspect]
     Indication: EXTRAPYRAMIDAL DISORDER
     Dosage: 10 MG (10 MG,1 IN 1 D),ORAL
     Route: 048
     Dates: start: 20080502, end: 20081021
  5. PROPOXYPHENE HCL AND ACETAMINOPHEN [Suspect]
     Indication: BACK PAIN
     Dosage: (6 DOSAGE FORMS),ORAL
     Route: 048
     Dates: start: 20080418, end: 20081021
  6. DAFLON [Suspect]
     Indication: VENOUS INSUFFICIENCY
     Dosage: 1000 MG (500 MG,2 IN 1 D),ORAL
     Route: 048
     Dates: start: 20080418, end: 20081021
  7. LANSOYL [Suspect]
     Indication: CONSTIPATION
     Dosage: (3 DOSAGE FORMS),ORAL
     Route: 048
     Dates: start: 20080506, end: 20081021
  8. RUBOZINC [Suspect]
     Indication: ACNE
     Dosage: 30 MG (15 MG,2 IN 1 D),ORAL
     Route: 048
     Dates: start: 20080618, end: 20081021
  9. LYSANXIA [Suspect]
     Indication: DEPRESSION
     Dosage: 30 MG (10 MG,3 IN 1 D),ORAL
     Route: 048
     Dates: start: 20080923, end: 20081021
  10. STEDIRIL [Concomitant]

REACTIONS (1)
  - PANCREATITIS ACUTE [None]
